FAERS Safety Report 7779914-0 (Version None)
Quarter: 2011Q3

REPORT INFORMATION
  Report Type: 
  Country: None (occurrence: None)
  Receive Date: 20110927
  Receipt Date: 20110919
  Transmission Date: 20111222
  Serious: Yes (Other)
  Sender: FDA-Public Use
  Company Number: US-ASTELLAS-2011US006120

PATIENT

DRUGS (5)
  1. EFUDEX [Suspect]
     Indication: OESOPHAGEAL ADENOCARCINOMA METASTATIC
     Dosage: 400 MG/M2, Q 14 DAYS
     Route: 065
  2. LEUCOVORIN CALCIUM [Suspect]
     Indication: OESOPHAGEAL ADENOCARCINOMA METASTATIC
     Dosage: 400 MG/M2, 1X PER 14 DAYS
  3. ERLOTINIB HYDROCHLORIDE [Suspect]
     Indication: OESOPHAGEAL ADENOCARCINOMA METASTATIC
     Dosage: 150 MG, UID/QD
     Route: 048
  4. OXALIPLATIN [Suspect]
     Indication: OESOPHAGEAL ADENOCARCINOMA METASTATIC
     Dosage: 85 MG/M2, 1X PER 14 DAYS
     Route: 065
  5. EFUDEX [Suspect]
     Dosage: 2400 MG/M2, Q 14 DAYS
     Route: 065

REACTIONS (1)
  - FEBRILE NEUTROPENIA [None]
